FAERS Safety Report 5051871-X (Version None)
Quarter: 2006Q3

REPORT INFORMATION
  Report Type: 
  Country: None (occurrence: None)
  Receive Date: 20060713
  Receipt Date: 20060713
  Transmission Date: 20061208
  Serious: No
  Sender: FDA-Public Use
  Company Number: None

PATIENT
  Age: 67 Year
  Sex: Male

DRUGS (2)
  1. AUGMENTIN '500' [Suspect]
     Indication: DISEASE RECURRENCE
     Dosage: 500 MG PO TID
     Route: 048
  2. AUGMENTIN '500' [Suspect]
     Indication: SKIN INFECTION
     Dosage: 500 MG PO TID
     Route: 048

REACTIONS (1)
  - RASH GENERALISED [None]
